FAERS Safety Report 6779142-1 (Version None)
Quarter: 2010Q2

REPORT INFORMATION
  Report Type: 
  Country: None (occurrence: None)
  Receive Date: 20100618
  Receipt Date: 20100607
  Transmission Date: 20101027
  Serious: Yes (Other)
  Sender: FDA-Public Use
  Company Number: CA-JNJFOC-20100602755

PATIENT
  Sex: Female
  Weight: 66.4 kg

DRUGS (4)
  1. REMICADE [Suspect]
     Indication: COLITIS ULCERATIVE
     Route: 042
  2. IMURAN [Concomitant]
     Dosage: 2 AND 1/2 TABS
     Route: 048
  3. SYNTHROID [Concomitant]
  4. TECTA [Concomitant]
     Dosage: PRN

REACTIONS (7)
  - DECREASED APPETITE [None]
  - FATIGUE [None]
  - FREQUENT BOWEL MOVEMENTS [None]
  - MALAISE [None]
  - NAUSEA [None]
  - PAIN [None]
  - WEIGHT DECREASED [None]
